FAERS Safety Report 16846474 (Version 1)
Quarter: 2019Q3

REPORT INFORMATION
  Report Type: Spontaneous
  Country: CA (occurrence: CA)
  Receive Date: 20190924
  Receipt Date: 20190924
  Transmission Date: 20191005
  Serious: Yes (Other)
  Sender: FDA-Public Use
  Company Number: CA-TEVA-2019-CA-1110740

PATIENT
  Age: 65 Year
  Sex: Female

DRUGS (28)
  1. VALSARTAN. [Suspect]
     Active Substance: VALSARTAN
     Indication: HYPERTENSION
     Dosage: 1 DOSAGE FORMS DAILY;
     Route: 048
  2. DESOXIMETASONE. [Concomitant]
     Active Substance: DESOXIMETASONE
     Indication: PRODUCT USED FOR UNKNOWN INDICATION
     Route: 065
  3. SPIRIVA [Concomitant]
     Active Substance: TIOTROPIUM BROMIDE MONOHYDRATE
     Indication: ASTHMA
     Dosage: 1 DOSAGE FORMS DAILY;
     Route: 065
  4. ARTHROTEC [Concomitant]
     Active Substance: DICLOFENAC SODIUM\MISOPROSTOL
     Indication: PRODUCT USED FOR UNKNOWN INDICATION
     Route: 065
  5. LEVOFLOXACIN. [Suspect]
     Active Substance: LEVOFLOXACIN
     Dosage: 750 MILLIGRAM DAILY;
     Route: 065
  6. PREDNISONE. [Suspect]
     Active Substance: PREDNISONE
     Indication: ASTHMA
     Dosage: 10 MILLIGRAM DAILY;
     Route: 065
  7. BIAXIN [Suspect]
     Active Substance: CLARITHROMYCIN
     Indication: COUGH
     Route: 065
  8. BILASTINE [Concomitant]
     Active Substance: BILASTINE
     Indication: PRODUCT USED FOR UNKNOWN INDICATION
     Dosage: 2 DOSAGE FORMS DAILY;
     Route: 048
  9. LEVOFLOXACIN. [Suspect]
     Active Substance: LEVOFLOXACIN
     Indication: PRODUCTIVE COUGH
     Route: 065
  10. PREDNISONE. [Suspect]
     Active Substance: PREDNISONE
     Indication: BRONCHOPULMONARY ASPERGILLOSIS ALLERGIC
     Route: 065
  11. PREDNISONE. [Suspect]
     Active Substance: PREDNISONE
     Indication: BLOOD IMMUNOGLOBULIN E INCREASED
     Dosage: 20 MILLIGRAM DAILY;
     Route: 065
  12. VORICONAZOLE. [Suspect]
     Active Substance: VORICONAZOLE
     Indication: BRONCHOPULMONARY ASPERGILLOSIS ALLERGIC
     Route: 065
  13. BIAXIN [Suspect]
     Active Substance: CLARITHROMYCIN
     Indication: BRONCHITIS
     Dosage: 2 DOSAGE FORMS DAILY;
     Route: 065
  14. ESCITALOPRAM OXALATE. [Concomitant]
     Active Substance: ESCITALOPRAM OXALATE
     Indication: PRODUCT USED FOR UNKNOWN INDICATION
     Dosage: 1 DOSAGE FORMS DAILY;
     Route: 048
  15. TAPAZOLE [Concomitant]
     Active Substance: METHIMAZOLE
     Indication: THYROID DISORDER
     Dosage: 2 DOSAGE FORMS DAILY;
     Route: 048
  16. ZANTAC [Concomitant]
     Active Substance: RANITIDINE HYDROCHLORIDE
     Indication: PRODUCT USED FOR UNKNOWN INDICATION
     Dosage: 1 DOSAGE FORMS DAILY;
     Route: 048
  17. ZENHALE [Concomitant]
     Active Substance: FORMOTEROL FUMARATE\MOMETASONE FUROATE
     Indication: PRODUCT USED FOR UNKNOWN INDICATION
     Dosage: 4 DOSAGE FORMS DAILY;
     Route: 065
  18. BIAXIN [Suspect]
     Active Substance: CLARITHROMYCIN
     Indication: SPUTUM DISCOLOURED
     Route: 065
  19. ADVAIR HFA [Concomitant]
     Active Substance: FLUTICASONE PROPIONATE\SALMETEROL XINAFOATE
     Indication: PRODUCT USED FOR UNKNOWN INDICATION
     Route: 065
  20. SINGULAIR [Concomitant]
     Active Substance: MONTELUKAST SODIUM
     Indication: PRODUCT USED FOR UNKNOWN INDICATION
     Dosage: 1 DOSAGE FORMS DAILY;
     Route: 048
  21. VENTOLIN [Concomitant]
     Active Substance: ALBUTEROL SULFATE
     Indication: ASTHMA
     Route: 065
  22. BIAXIN [Suspect]
     Active Substance: CLARITHROMYCIN
     Indication: PYREXIA
     Route: 065
  23. BIAXIN [Suspect]
     Active Substance: CLARITHROMYCIN
     Indication: PRODUCTIVE COUGH
     Route: 065
  24. OMALIZUMAB. [Suspect]
     Active Substance: OMALIZUMAB
     Route: 058
  25. HYDROCHLOROTHIAZIDE. [Concomitant]
     Active Substance: HYDROCHLOROTHIAZIDE
     Indication: PRODUCT USED FOR UNKNOWN INDICATION
     Route: 065
  26. OMALIZUMAB. [Suspect]
     Active Substance: OMALIZUMAB
     Indication: ASTHMA
     Route: 058
  27. OMALIZUMAB. [Suspect]
     Active Substance: OMALIZUMAB
     Route: 058
  28. OMNARIS [Concomitant]
     Active Substance: CICLESONIDE
     Indication: HYPERSENSITIVITY
     Dosage: 4 DOSAGE FORMS DAILY;
     Route: 065

REACTIONS (64)
  - Back pain [Unknown]
  - Bone pain [Unknown]
  - Delirium [Unknown]
  - Dyspnoea [Unknown]
  - Eye injury [Unknown]
  - Fibromyalgia [Unknown]
  - Nausea [Unknown]
  - Pyrexia [Unknown]
  - Sputum discoloured [Unknown]
  - Wound infection [Unknown]
  - Accident [Unknown]
  - Animal scratch [Unknown]
  - Compression fracture [Unknown]
  - Diarrhoea [Unknown]
  - Functional residual capacity increased [Unknown]
  - Muscle atrophy [Unknown]
  - Nasopharyngitis [Unknown]
  - Nervousness [Unknown]
  - Productive cough [Unknown]
  - Respiratory disorder [Unknown]
  - Weight decreased [Unknown]
  - Wheezing [Unknown]
  - Cataract [Unknown]
  - Chest discomfort [Unknown]
  - Fall [Unknown]
  - Forced vital capacity decreased [Unknown]
  - Hypertension [Unknown]
  - Inappropriate schedule of product administration [Unknown]
  - Rales [Unknown]
  - Sputum increased [Unknown]
  - Asthenia [Unknown]
  - Bronchitis [Unknown]
  - Decreased appetite [Unknown]
  - Heart rate increased [Unknown]
  - Musculoskeletal discomfort [Unknown]
  - Obstructive airways disorder [Unknown]
  - Rhinorrhoea [Unknown]
  - Weight increased [Unknown]
  - Arthralgia [Unknown]
  - Limb injury [Unknown]
  - Malaise [Unknown]
  - Pain in extremity [Unknown]
  - Bronchopulmonary aspergillosis allergic [Unknown]
  - Fatigue [Unknown]
  - Fungal infection [Unknown]
  - Memory impairment [Unknown]
  - Nasal congestion [Unknown]
  - Wound [Unknown]
  - Allergy to animal [Unknown]
  - Anxiety [Unknown]
  - Bone disorder [Unknown]
  - Gait disturbance [Unknown]
  - Influenza [Unknown]
  - Oropharyngeal pain [Unknown]
  - Skin laceration [Unknown]
  - Cough [Unknown]
  - Asthma [Unknown]
  - Bronchial secretion retention [Unknown]
  - Cellulitis [Unknown]
  - Disorganised speech [Unknown]
  - Forced expiratory volume decreased [Unknown]
  - Insomnia [Unknown]
  - Swelling [Unknown]
  - Visual impairment [Unknown]
